FAERS Safety Report 14911606 (Version 1)
Quarter: 2018Q2

REPORT INFORMATION
  Report Type: Spontaneous
  Country: GB (occurrence: GB)
  Receive Date: 20180518
  Receipt Date: 20180518
  Transmission Date: 20180711
  Serious: Yes (Other)
  Sender: FDA-Public Use
  Company Number: GB-SUN PHARMACEUTICAL INDUSTRIES LTD-2018RR-173079

PATIENT
  Age: 23 Year
  Sex: Female
  Weight: 69.85 kg

DRUGS (1)
  1. SERTRALINE [Suspect]
     Active Substance: SERTRALINE HYDROCHLORIDE
     Indication: DEPRESSION
     Dosage: 50 MG, UNK
     Route: 048
     Dates: start: 20170425, end: 20170501

REACTIONS (3)
  - Mania [Unknown]
  - Mood swings [Not Recovered/Not Resolved]
  - Depression suicidal [Unknown]

NARRATIVE: CASE EVENT DATE: 20170425
